FAERS Safety Report 23623552 (Version 1)
Quarter: 2024Q1

REPORT INFORMATION
  Report Type: Spontaneous
  Country: GB (occurrence: GB)
  Receive Date: 20240312
  Receipt Date: 20240312
  Transmission Date: 20240410
  Serious: Yes (Hospitalization)
  Sender: FDA-Public Use
  Company Number: None

PATIENT
  Age: 26 Year

DRUGS (3)
  1. KETAMINE HYDROCHLORIDE [Suspect]
     Active Substance: KETAMINE HYDROCHLORIDE
     Dosage: UNK
  2. CANNABIS SATIVA FLOWERING TOP [Suspect]
     Active Substance: CANNABIS SATIVA FLOWERING TOP
  3. COCAINE\EPINEPHRINE\TETRACAINE HYDROCHLORIDE [Suspect]
     Active Substance: COCAINE\EPINEPHRINE\TETRACAINE HYDROCHLORIDE
     Dosage: UNK

REACTIONS (1)
  - Chest pain [Recovered/Resolved]
